FAERS Safety Report 20937413 (Version 1)
Quarter: 2022Q2

REPORT INFORMATION
  Report Type: Spontaneous
  Country: US (occurrence: US)
  Receive Date: 20220609
  Receipt Date: 20220609
  Transmission Date: 20220721
  Serious: No
  Sender: FDA-Public Use
  Company Number: US-BAXTER-2022BAX012143

PATIENT
  Age: 64 Year

DRUGS (11)
  1. NEXTERONE [Suspect]
     Active Substance: AMIODARONE HYDROCHLORIDE
     Dosage: 150 MG
     Route: 065
     Dates: start: 20220524
  2. MAGNESIUM [Suspect]
     Active Substance: MAGNESIUM
     Dosage: 1 G
     Route: 065
     Dates: start: 20220524
  3. LEVOPHED [Suspect]
     Active Substance: NOREPINEPHRINE BITARTRATE
     Dosage: 25 MCG/MIN
     Route: 065
     Dates: start: 20220524
  4. LEVOPHED [Suspect]
     Active Substance: NOREPINEPHRINE BITARTRATE
     Dosage: 100 MCG/MIN
     Route: 065
     Dates: start: 20220524
  5. EPINEPHRINE [Suspect]
     Active Substance: EPINEPHRINE
     Dosage: UNK
     Route: 065
     Dates: start: 20220524
  6. EPINEPHRINE [Suspect]
     Active Substance: EPINEPHRINE
     Dosage: 10MCG/MIN
     Route: 065
     Dates: start: 20220524
  7. EPINEPHRINE [Suspect]
     Active Substance: EPINEPHRINE
     Dosage: 2 MG
     Route: 065
     Dates: start: 20220524
  8. SODIUM BICARBONATE [Suspect]
     Active Substance: SODIUM BICARBONATE
     Dosage: 3 AMPS
     Route: 065
     Dates: start: 20220524
  9. CALCIUM CHLORIDE [Suspect]
     Active Substance: CALCIUM CHLORIDE
     Dosage: 1 G
     Route: 065
     Dates: start: 20220524
  10. VASOPRESSIN [Suspect]
     Active Substance: VASOPRESSIN
     Dosage: 0.04 U/MIN
     Route: 065
     Dates: start: 20220524
  11. VASOPRESSIN [Suspect]
     Active Substance: VASOPRESSIN
     Dosage: UNK
     Route: 065
     Dates: start: 20220524

REACTIONS (3)
  - Hypertension [Unknown]
  - Cardiovascular disorder [Unknown]
  - Device occlusion [Recovered/Resolved]

NARRATIVE: CASE EVENT DATE: 20220524
